FAERS Safety Report 18071892 (Version 1)
Quarter: 2020Q3

REPORT INFORMATION
  Report Type: Spontaneous
  Country: GB (occurrence: IN)
  Receive Date: 20200727
  Receipt Date: 20200727
  Transmission Date: 20201103
  Serious: Yes (Other)
  Sender: FDA-Public Use
  Company Number: IN-ASTELLAS-2020US024386

PATIENT
  Age: 60 Year
  Sex: Female

DRUGS (3)
  1. ERLOTINIB [Suspect]
     Active Substance: ERLOTINIB
     Indication: GALLBLADDER CANCER
     Route: 048
  2. OXALIPLATIN. [Suspect]
     Active Substance: OXALIPLATIN
     Indication: GALLBLADDER CANCER
     Dosage: 100 MG/M2, ON DAY 1 EVERY 21 DAYS (CYCLIC)
     Route: 042
  3. GEMCITABINE. [Suspect]
     Active Substance: GEMCITABINE
     Indication: GALLBLADDER CANCER
     Dosage: 1 GM/M2 ON DAY 1 AND DAY 8 EVERY 21 DAYS (CYCLIC)
     Route: 065

REACTIONS (2)
  - Neutropenia [Unknown]
  - Rash [Unknown]
